FAERS Safety Report 12904443 (Version 1)
Quarter: 2016Q4

REPORT INFORMATION
  Report Type: Spontaneous
  Country: RU (occurrence: RU)
  Receive Date: 20161102
  Receipt Date: 20161102
  Transmission Date: 20170207
  Serious: Yes (Other)
  Sender: FDA-Public Use
  Company Number: RU-PFIZER INC-2016502814

PATIENT
  Sex: Female

DRUGS (1)
  1. CELEBREX [Suspect]
     Active Substance: CELECOXIB
     Indication: OSTEOARTHRITIS
     Dosage: 200 MG, 1X/DAY
     Route: 048
     Dates: start: 201608, end: 201608

REACTIONS (1)
  - Asphyxia [Recovered/Resolved]

NARRATIVE: CASE EVENT DATE: 201608
